FAERS Safety Report 6578746-9 (Version None)
Quarter: 2010Q1

REPORT INFORMATION
  Report Type: 
  Country: None (occurrence: None)
  Receive Date: 20100202
  Receipt Date: 20100122
  Transmission Date: 20100710
  Serious: Yes (Hospitalization)
  Sender: FDA-Public Use
  Company Number: 2010AP000143

PATIENT
  Age: 63 Year
  Sex: Female

DRUGS (5)
  1. PAROXETINE HCL [Suspect]
     Indication: DEPRESSION
     Dosage: 20 MG; PO
     Route: 048
     Dates: start: 20091221, end: 20100101
  2. ERYTHROMYCIN [Concomitant]
  3. FUROSEMIDE [Concomitant]
  4. METRONIDAZOLE [Concomitant]
  5. ZOPICLONE (ZOPICLONE) [Concomitant]

REACTIONS (3)
  - ERYTHEMA [None]
  - HYPOMANIA [None]
  - OEDEMA PERIPHERAL [None]
